FAERS Safety Report 23246031 (Version 1)
Quarter: 2023Q4

REPORT INFORMATION
  Report Type: Report from Study
  Country: DZ (occurrence: DZ)
  Receive Date: 20231130
  Receipt Date: 20231130
  Transmission Date: 20240109
  Serious: Yes (Death)
  Sender: FDA-Public Use
  Company Number: DZ-BAYER-2023A171333

PATIENT
  Age: 33 Year
  Sex: Female

DRUGS (1)
  1. INTERFERON BETA-1B [Suspect]
     Active Substance: INTERFERON BETA-1B
     Indication: Multiple sclerosis
     Dosage: 1 CC IN SUBCUTANEOUS INJECTION ONCE EVERY TWO DAYS
     Route: 058
     Dates: start: 20211130, end: 20231108

REACTIONS (1)
  - Death [Fatal]

NARRATIVE: CASE EVENT DATE: 20231110
